FAERS Safety Report 9602133 (Version 1)
Quarter: 2013Q4

REPORT INFORMATION
  Report Type: Spontaneous
  Country: AU (occurrence: None)
  Receive Date: 20131002
  Receipt Date: 20131002
  Transmission Date: 20140711
  Serious: Yes (Life-Threatening)
  Sender: FDA-Public Use
  Company Number: 2013AU009391

PATIENT
  Age: 47 Year
  Sex: Female
  Weight: 55.1 kg

DRUGS (5)
  1. ALOXI [Suspect]
     Dates: start: 20130621
  2. DEXAMETHASONE [Suspect]
     Route: 042
     Dates: start: 20130621
  3. PACLITAXEL [Suspect]
     Route: 048
     Dates: start: 20130621
  4. LORATADINE [Suspect]
     Route: 048
     Dates: start: 20130621
  5. RANITIDINE [Suspect]
     Route: 042
     Dates: start: 20130621

REACTIONS (6)
  - Dyspnoea [None]
  - Chest discomfort [None]
  - Swollen tongue [None]
  - Lip swelling [None]
  - Rash [None]
  - Abdominal pain [None]
